FAERS Safety Report 18474789 (Version 1)
Quarter: 2020Q4

REPORT INFORMATION
  Report Type: Report from Study
  Country: US (occurrence: US)
  Receive Date: 20201106
  Receipt Date: 20201106
  Transmission Date: 20210114
  Serious: Yes (Other)
  Sender: FDA-Public Use
  Company Number: US-JNJFOC-20201051466

PATIENT
  Age: 56 Year
  Sex: Female

DRUGS (5)
  1. HALCION [Concomitant]
     Active Substance: TRIAZOLAM
     Route: 048
  2. TRAZODONE [Concomitant]
     Active Substance: TRAZODONE HYDROCHLORIDE
     Route: 048
  3. SPRAVATO [Suspect]
     Active Substance: ESKETAMINE
     Indication: DEPRESSION
     Dates: start: 20201021, end: 20201021
  4. IMIPRAMINE [Concomitant]
     Active Substance: IMIPRAMINE
     Route: 048
  5. XANAX [Concomitant]
     Active Substance: ALPRAZOLAM
     Route: 048

REACTIONS (2)
  - Dissociation [Recovered/Resolved]
  - Panic attack [Recovered/Resolved]

NARRATIVE: CASE EVENT DATE: 20201021
